FAERS Safety Report 20484163 (Version 3)
Quarter: 2022Q1

REPORT INFORMATION
  Report Type: Other
  Country: DE (occurrence: DE)
  Receive Date: 20220217
  Receipt Date: 20220324
  Transmission Date: 20220423
  Serious: Yes (Congenital Anomaly, Other)
  Sender: FDA-Public Use
  Company Number: DE-MACLEODS PHARMACEUTICALS US LTD-MAC2022034373

PATIENT

DRUGS (2)
  1. EMTRICITABINE\TENOFOVIR DISOPROXIL [Suspect]
     Active Substance: EMTRICITABINE\TENOFOVIR DISOPROXIL
     Indication: Product used for unknown indication
     Dosage: 445 MILLIGRAM, QD, EARLIEST EXPOSURE TRIMESTER: SECOND, NUMBER OF COURSES: 1
     Route: 064
     Dates: start: 20210412
  2. ISENTRESS [Suspect]
     Active Substance: RALTEGRAVIR POTASSIUM
     Indication: Product used for unknown indication
     Dosage: 400 MILLIGRAM, BID(800 MILLIGRAM QD), EARLIEST EXPOSURE TRIMESTER: SECOND, NUMBER OF COURSES: 1
     Route: 064
     Dates: start: 20210412

REACTIONS (2)
  - Polydactyly [Unknown]
  - Foetal exposure during pregnancy [Unknown]

NARRATIVE: CASE EVENT DATE: 20210714
